FAERS Safety Report 25907639 (Version 1)
Quarter: 2025Q4

REPORT INFORMATION
  Report Type: Spontaneous
  Country: GB (occurrence: GB)
  Receive Date: 20251010
  Receipt Date: 20251010
  Transmission Date: 20260119
  Serious: Yes (Other)
  Sender: TEVA
  Company Number: GB-MHRA-TPP45702252C11855260YC1759763476817

PATIENT
  Age: 53 Year
  Sex: Female
  Weight: 115 kg

DRUGS (6)
  1. AMLODIPINE [Suspect]
     Active Substance: AMLODIPINE BESYLATE
     Indication: Product used for unknown indication
     Dosage: (INCREASE DOSE 3/7/2023
     Route: 065
     Dates: start: 20230703
  2. RAMIPRIL [Concomitant]
     Active Substance: RAMIPRIL
     Indication: Product used for unknown indication
     Route: 065
     Dates: start: 20200907
  3. BENDROFLUMETHIAZIDE [Concomitant]
     Active Substance: BENDROFLUMETHIAZIDE
     Indication: Product used for unknown indication
     Route: 065
     Dates: start: 20200907
  4. DESOGESTREL [Concomitant]
     Active Substance: DESOGESTREL
     Indication: Product used for unknown indication
     Dosage: AT THE SAME TIME
     Route: 065
     Dates: start: 20200907
  5. COCODAMOL [Concomitant]
     Active Substance: ACETAMINOPHEN\CODEINE PHOSPHATE
     Indication: Product used for unknown indication
     Dosage: TAKE ONE OR TWO TABLETS FOUR TIMES A DAY WHEN R
     Route: 065
     Dates: start: 20250805, end: 20250902
  6. LANSOPRAZOLE [Concomitant]
     Active Substance: LANSOPRAZOLE
     Indication: Product used for unknown indication
     Dosage: WHILE TAKING NAPROXEN
     Route: 065
     Dates: start: 20250805, end: 20250902

REACTIONS (1)
  - Joint swelling [Recovering/Resolving]
